FAERS Safety Report 8557444-6 (Version None)
Quarter: 2012Q2

REPORT INFORMATION
  Report Type: 
  Country: None (occurrence: None)
  Receive Date: 20120418
  Receipt Date: 20090323
  Transmission Date: 20120825
  Serious: Yes (Other)
  Sender: FDA-Public Use
  Company Number: PHEH2009US02918

PATIENT
  Age: 74 Year
  Sex: Female

DRUGS (1)
  1. DIOVAN HCT [Suspect]
     Indication: HYPERTENSION
     Dosage: 160/12.5 MG, QD, ORAL 320/12.5 MG, QD, ORAL
     Route: 048

REACTIONS (2)
  - PANCREATITIS [None]
  - AMYLASE INCREASED [None]
